FAERS Safety Report 9470456 (Version 2)
Quarter: 2013Q4

REPORT INFORMATION
  Report Type: Spontaneous
  Country: CA (occurrence: CA)
  Receive Date: 20130822
  Receipt Date: 20131015
  Transmission Date: 20140711
  Serious: Yes (Other)
  Sender: FDA-Public Use
  Company Number: CA-SANOFI-AVENTIS-2013SA082740

PATIENT
  Age: 43 Year
  Sex: Male

DRUGS (3)
  1. DEMEROL [Suspect]
     Indication: BACK DISORDER
     Route: 065
  2. MORPHINE SULFATE [Suspect]
     Indication: PRODUCT USED FOR UNKNOWN INDICATION
     Route: 065
  3. OXYCONTIN [Suspect]
     Indication: BACK DISORDER
     Route: 065

REACTIONS (5)
  - Insomnia [Unknown]
  - Memory impairment [Unknown]
  - Mental impairment [Unknown]
  - Drug dependence [Unknown]
  - Substance abuse [Unknown]
